FAERS Safety Report 16154141 (Version 2)
Quarter: 2019Q2

REPORT INFORMATION
  Report Type: Spontaneous
  Country: PT (occurrence: PT)
  Receive Date: 20190403
  Receipt Date: 20190530
  Transmission Date: 20190711
  Serious: Yes (Other)
  Sender: FDA-Public Use
  Company Number: PT-TEVA-2019-PT-1032574

PATIENT
  Sex: Female

DRUGS (15)
  1. GLATIRAMER ACETATE. [Suspect]
     Active Substance: GLATIRAMER ACETATE
     Indication: RELAPSING-REMITTING MULTIPLE SCLEROSIS
     Route: 065
  2. CICLOSPORIN [Suspect]
     Active Substance: CYCLOSPORINE
     Indication: RELAPSING-REMITTING MULTIPLE SCLEROSIS
     Dosage: 3 MG/KG DAILY;
     Route: 065
  3. AZATHIOPRINE. [Suspect]
     Active Substance: AZATHIOPRINE
     Indication: URTICARIAL VASCULITIS
  4. METHOTREXATE. [Suspect]
     Active Substance: METHOTREXATE
     Indication: URTICARIAL VASCULITIS
  5. HYDROXYCHLOROQUINE [Concomitant]
     Active Substance: HYDROXYCHLOROQUINE
     Route: 065
  6. DIMETHYL FUMARATE [Suspect]
     Active Substance: DIMETHYL FUMARATE
     Indication: RELAPSING-REMITTING MULTIPLE SCLEROSIS
     Route: 065
  7. COLCHICINE. [Concomitant]
     Active Substance: COLCHICINE
     Route: 065
  8. METHOTREXATE. [Suspect]
     Active Substance: METHOTREXATE
     Indication: RELAPSING-REMITTING MULTIPLE SCLEROSIS
     Route: 048
  9. CICLOSPORIN [Suspect]
     Active Substance: CYCLOSPORINE
     Indication: URTICARIAL VASCULITIS
  10. IMMUNOGLOBULIN IV [Suspect]
     Active Substance: HUMAN IMMUNOGLOBULIN G
     Indication: URTICARIAL VASCULITIS
  11. IMMUNOGLOBULIN IV [Suspect]
     Active Substance: HUMAN IMMUNOGLOBULIN G
     Indication: RELAPSING-REMITTING MULTIPLE SCLEROSIS
     Dosage: 0.4G/KG
     Route: 042
  12. DAPSONE. [Concomitant]
     Active Substance: DAPSONE
     Route: 065
  13. INTERFERON BETA-1B [Concomitant]
     Active Substance: INTERFERON BETA-1B
     Route: 065
  14. AZATHIOPRINE. [Suspect]
     Active Substance: AZATHIOPRINE
     Indication: RELAPSING-REMITTING MULTIPLE SCLEROSIS
     Dosage: 100 MILLIGRAM DAILY;
     Route: 065
  15. DIMETHYL FUMARATE [Suspect]
     Active Substance: DIMETHYL FUMARATE
     Indication: URTICARIAL VASCULITIS

REACTIONS (7)
  - Drug ineffective [Unknown]
  - Diarrhoea [Unknown]
  - Hepatitis [Unknown]
  - Thrombocytopenia [Unknown]
  - Hypertension [Unknown]
  - Cutaneous symptom [Unknown]
  - Urticarial vasculitis [Unknown]
